FAERS Safety Report 6377815-6 (Version None)
Quarter: 2009Q3

REPORT INFORMATION
  Report Type: 
  Country: None (occurrence: None)
  Receive Date: 20090925
  Receipt Date: 20090915
  Transmission Date: 20100115
  Serious: Yes (Hospitalization, Other)
  Sender: FDA-Public Use
  Company Number: TR-ELI_LILLY_AND_COMPANY-TR200909003441

PATIENT
  Age: 43 Year

DRUGS (2)
  1. HUMALOG [Suspect]
     Indication: DIABETES MELLITUS
     Dosage: 15 IU, 3/D
     Route: 058
     Dates: start: 20070101, end: 20090601
  2. LANTUS [Concomitant]
     Indication: DIABETES MELLITUS
     Dosage: 30 IU, EACH EVENING
     Route: 058

REACTIONS (1)
  - DIABETIC HYPERGLYCAEMIC COMA [None]
